FAERS Safety Report 16237457 (Version 1)
Quarter: 2019Q2

REPORT INFORMATION
  Report Type: Spontaneous
  Country: US (occurrence: US)
  Receive Date: 20190320
  Receipt Date: 20190320
  Transmission Date: 20190711
  Serious: No
  Sender: FDA-Public Use
  Company Number: None

PATIENT
  Age: 68 Year
  Sex: Male

DRUGS (4)
  1. ZYTIGA [Suspect]
     Active Substance: ABIRATERONE ACETATE
     Indication: PROSTATE CANCER
     Dates: start: 20160916
  2. PREDNISONE. [Concomitant]
     Active Substance: PREDNISONE
  3. NORVASC [Concomitant]
     Active Substance: AMLODIPINE BESYLATE
  4. MULTIVITAMIN [Concomitant]
     Active Substance: VITAMINS

REACTIONS (2)
  - Fatigue [None]
  - Dehydration [None]

NARRATIVE: CASE EVENT DATE: 20181001
